FAERS Safety Report 6922182-X (Version None)
Quarter: 2010Q3

REPORT INFORMATION
  Report Type: 
  Country: None (occurrence: None)
  Receive Date: 20100812
  Receipt Date: 20100804
  Transmission Date: 20110219
  Serious: Yes (Life-Threatening, Hospitalization)
  Sender: FDA-Public Use
  Company Number: US-AMGEN-KDC428948

PATIENT
  Sex: Male
  Weight: 68.1 kg

DRUGS (21)
  1. PANITUMUMAB [Suspect]
     Indication: SQUAMOUS CELL CARCINOMA
     Route: 042
     Dates: start: 20100623, end: 20100720
  2. TAXOL [Suspect]
     Route: 042
     Dates: start: 20100623, end: 20100720
  3. CARBOPLATIN [Suspect]
     Route: 058
     Dates: start: 20100623, end: 20100720
  4. RADIATION THERAPY [Suspect]
     Dates: start: 20100621, end: 20100720
  5. ATIVAN [Concomitant]
  6. ALKALOL [Concomitant]
  7. CLINDAGEL [Concomitant]
  8. CLOBETASOL PROPIONATE [Concomitant]
  9. COMPAZINE [Concomitant]
  10. DECADRON [Concomitant]
  11. DILAUDID [Concomitant]
  12. DULCOLAX [Concomitant]
  13. FENTANYL CITRATE [Concomitant]
  14. LIDOCAINE [Concomitant]
  15. DEXAMETHASONE [Concomitant]
     Route: 050
  16. MUCOMYST [Concomitant]
  17. NYSTATIN [Concomitant]
     Route: 050
  18. PREDNISONE [Concomitant]
  19. REGLAN [Concomitant]
  20. ROXICET [Concomitant]
  21. ZOFRAN [Concomitant]

REACTIONS (8)
  - DELIRIUM [None]
  - DEVICE RELATED INFECTION [None]
  - FEBRILE NEUTROPENIA [None]
  - HEPATIC FAILURE [None]
  - HEPATITIS VIRAL [None]
  - ISCHAEMIC HEPATITIS [None]
  - PANCYTOPENIA [None]
  - TRANSAMINASES INCREASED [None]
